FAERS Safety Report 8921353 (Version 1)
Quarter: 2012Q4

REPORT INFORMATION
  Report Type: Report from Study
  Country: AU (occurrence: AU)
  Receive Date: 20121121
  Receipt Date: 20121121
  Transmission Date: 20130627
  Serious: Yes (Life-Threatening, Other)
  Sender: FDA-Public Use
  Company Number: AU-BRISTOL-MYERS SQUIBB COMPANY-17125618

PATIENT
  Age: 53 Year
  Sex: Female

DRUGS (8)
  1. ORENCIA [Suspect]
     Indication: RHEUMATOID ARTHRITIS
     Dosage: switched to SC orencia in Aug12
     Route: 042
     Dates: start: 201202
  2. PREDNISONE [Suspect]
  3. NORVASC [Concomitant]
  4. OSTELIN [Concomitant]
  5. VITAMIN D [Concomitant]
  6. CALTRATE [Concomitant]
  7. PARIET [Concomitant]
  8. PILOCARPINE HCL [Concomitant]

REACTIONS (4)
  - Intestinal perforation [Recovered/Resolved with Sequelae]
  - Diverticulitis [Unknown]
  - Gastric disorder [Unknown]
  - Clavicle fracture [Unknown]
